FAERS Safety Report 7094155-0 (Version None)
Quarter: 2010Q4

REPORT INFORMATION
  Report Type: 
  Country: None (occurrence: None)
  Receive Date: 20101109
  Receipt Date: 20101109
  Transmission Date: 20110411
  Serious: Yes (Other)
  Sender: FDA-Public Use
  Company Number: None

PATIENT
  Age: 49 Year
  Sex: Female
  Weight: 45.3597 kg

DRUGS (1)
  1. ANTABUSE [Suspect]

REACTIONS (5)
  - ASTHENIA [None]
  - DISORIENTATION [None]
  - MALAISE [None]
  - NEUROPATHY PERIPHERAL [None]
  - PARAESTHESIA [None]
